FAERS Safety Report 16668017 (Version 3)
Quarter: 2019Q3

REPORT INFORMATION
  Report Type: Spontaneous
  Country: TR (occurrence: TR)
  Receive Date: 20190805
  Receipt Date: 20190829
  Transmission Date: 20191004
  Serious: Yes (Life-Threatening, Hospitalization, Other)
  Sender: FDA-Public Use
  Company Number: TR-JNJFOC-20190802401

PATIENT
  Age: 29 Year
  Sex: Female
  Weight: 68 kg

DRUGS (2)
  1. MODET [Concomitant]
     Dosage: UNK
  2. RIVAROXABAN [Suspect]
     Active Substance: RIVAROXABAN
     Indication: DEEP VEIN THROMBOSIS
     Dosage: UNK
     Route: 048
     Dates: end: 20190723

REACTIONS (6)
  - Drain placement [Unknown]
  - Haemoglobin decreased [Unknown]
  - Internal haemorrhage [Recovered/Resolved with Sequelae]
  - Ileus [Unknown]
  - Intra-abdominal haemorrhage [Recovered/Resolved with Sequelae]
  - Appendicectomy [Unknown]

NARRATIVE: CASE EVENT DATE: 201907
